FAERS Safety Report 10120511 (Version 1)
Quarter: 2014Q2

REPORT INFORMATION
  Report Type: Report from Study
  Country: AU (occurrence: AU)
  Receive Date: 20140425
  Receipt Date: 20140425
  Transmission Date: 20141212
  Serious: Yes (Death, Other)
  Sender: FDA-Public Use
  Company Number: PHHY2014AU050123

PATIENT
  Sex: Male

DRUGS (1)
  1. SANDOSTATIN LAR [Suspect]
     Indication: CARCINOID SYNDROME
     Dosage: 30 MG, UNK
     Route: 030
     Dates: end: 201307

REACTIONS (5)
  - Death [Fatal]
  - Hepatic failure [Unknown]
  - Metastases to liver [Unknown]
  - Terminal state [None]
  - Malignant neoplasm progression [None]
